FAERS Safety Report 12102765 (Version 1)
Quarter: 2016Q1

REPORT INFORMATION
  Report Type: Other
  Country: US (occurrence: US)
  Receive Date: 20160222
  Receipt Date: 20160222
  Transmission Date: 20160526
  Serious: No
  Sender: FDA-Public Use
  Company Number: US-ACORDA-ACO_113149_2015

PATIENT
  Age: 52 Year
  Sex: Male

DRUGS (1)
  1. AMPYRA [Suspect]
     Active Substance: DALFAMPRIDINE
     Indication: MULTIPLE SCLEROSIS
     Dosage: 10 MG, BID
     Route: 048
     Dates: start: 20111228

REACTIONS (7)
  - Neutrophil count increased [Unknown]
  - Blood chloride increased [None]
  - Lymphocyte percentage decreased [Unknown]
  - Lipase increased [Unknown]
  - Cholelithiasis [Unknown]
  - White blood cell count increased [Unknown]
  - Neutrophil percentage increased [Unknown]

NARRATIVE: CASE EVENT DATE: 20150512
